FAERS Safety Report 7135332-X (Version None)
Quarter: 2010Q4

REPORT INFORMATION
  Report Type: 
  Country: None (occurrence: None)
  Receive Date: 20101203
  Receipt Date: 20101123
  Transmission Date: 20110411
  Serious: Yes (Hospitalization)
  Sender: FDA-Public Use
  Company Number: US-TEVA-256933USA

PATIENT
  Sex: Female

DRUGS (2)
  1. PROPOXYPHENE NAPSYLATE AND ACETAMINOPHEN [Suspect]
     Indication: PAIN
     Dates: start: 20100706, end: 20100706
  2. AMOXICILLIN [Concomitant]

REACTIONS (9)
  - BLOOD PRESSURE INCREASED [None]
  - CHROMATURIA [None]
  - DYSPEPSIA [None]
  - HYPOKALAEMIA [None]
  - HYPONATRAEMIA [None]
  - MENTAL DISORDER [None]
  - NAUSEA [None]
  - NICOTINE DEPENDENCE [None]
  - VOMITING PROJECTILE [None]
